FAERS Safety Report 8158093-4 (Version None)
Quarter: 2012Q1

REPORT INFORMATION
  Report Type: 
  Country: None (occurrence: None)
  Receive Date: 20120222
  Receipt Date: 20120217
  Transmission Date: 20120608
  Serious: Yes (Other)
  Sender: FDA-Public Use
  Company Number: PHHO2012DE003049

PATIENT
  Sex: Male
  Weight: 75.6 kg

DRUGS (2)
  1. FTY [Suspect]
     Indication: MULTIPLE SCLEROSIS RELAPSE
     Dosage: 0.5 MG, QD
     Route: 048
     Dates: start: 20110314, end: 20120201
  2. SYMBICORT [Concomitant]
     Indication: ASTHMA
     Dosage: 2 TAB DAILY
     Dates: start: 20070905

REACTIONS (1)
  - BASAL CELL CARCINOMA [None]
